FAERS Safety Report 5470488-6 (Version None)
Quarter: 2007Q3

REPORT INFORMATION
  Report Type: 
  Country: None (occurrence: None)
  Receive Date: 20070820
  Receipt Date: 20070614
  Transmission Date: 20080115
  Serious: No
  Sender: FDA-Public Use
  Company Number: WAES 0706USA02507

PATIENT
  Age: 50 Year
  Sex: Female

DRUGS (3)
  1. JANUVIA [Suspect]
     Indication: DIABETES MELLITUS
     Dosage: 100 MG/DAILY/PO
     Route: 048
     Dates: start: 20070531, end: 20070609
  2. THERAPY UNSPECIFIED [Concomitant]
  3. VITAMINS (UNSPECIFIED) [Concomitant]

REACTIONS (4)
  - CONSTIPATION [None]
  - DYSPNOEA [None]
  - RHINORRHOEA [None]
  - UPPER RESPIRATORY TRACT INFECTION [None]
